FAERS Safety Report 8962887 (Version 2)
Quarter: 2013Q1

REPORT INFORMATION
  Report Type: Spontaneous
  Country: US (occurrence: US)
  Receive Date: 20121214
  Receipt Date: 20130212
  Transmission Date: 20140127
  Serious: Yes (Hospitalization)
  Sender: FDA-Public Use
  Company Number: US-PFIZER INC-2012312121

PATIENT
  Sex: Male

DRUGS (1)
  1. DEXAMETHASONE SODIUM PHOSPHATE [Suspect]
     Dosage: UNK

REACTIONS (4)
  - Substance-induced psychotic disorder [Unknown]
  - Delusion [Unknown]
  - Hallucination [Unknown]
  - Memory impairment [Unknown]
